FAERS Safety Report 6702264-8 (Version None)
Quarter: 2010Q2

REPORT INFORMATION
  Report Type: 
  Country: None (occurrence: None)
  Receive Date: 20100429
  Receipt Date: 20100420
  Transmission Date: 20101027
  Serious: Yes (Hospitalization)
  Sender: FDA-Public Use
  Company Number: DE-B.I. PHARMACEUTICALS,INC./RIDGEFIELD-2010-DE-02240DE

PATIENT
  Sex: Female

DRUGS (1)
  1. SIFROL RETARDTABLETS [Suspect]
     Indication: PARKINSON'S DISEASE
     Dosage: 2.1 MG
     Route: 048

REACTIONS (1)
  - PULMONARY OEDEMA [None]
